FAERS Safety Report 25698841 (Version 1)
Quarter: 2025Q3

REPORT INFORMATION
  Report Type: Spontaneous
  Country: US (occurrence: None)
  Receive Date: 20250818
  Receipt Date: 20250818
  Transmission Date: 20251021
  Serious: Yes (Life-Threatening, Hospitalization)
  Sender: FDA-CTU
  Company Number: None

PATIENT
  Age: 81 Year
  Sex: Female

DRUGS (2)
  1. WARFARIN [Suspect]
     Active Substance: WARFARIN
  2. WARFARIN [Concomitant]
     Active Substance: WARFARIN

REACTIONS (5)
  - Hypotension [None]
  - Unresponsive to stimuli [None]
  - Atrial fibrillation [None]
  - Retroperitoneal haematoma [None]
  - Post procedural fistula [None]

NARRATIVE: CASE EVENT DATE: 20240920
